FAERS Safety Report 15130508 (Version 2)
Quarter: 2018Q3

REPORT INFORMATION
  Report Type: Spontaneous
  Country: IT (occurrence: IT)
  Receive Date: 20180711
  Receipt Date: 20180809
  Transmission Date: 20181010
  Serious: Yes (Death, Hospitalization, Other)
  Sender: FDA-Public Use
  Company Number: IT-BAYER-2018-125710

PATIENT
  Age: 58 Year
  Sex: Female

DRUGS (2)
  1. STIVARGA [Suspect]
     Active Substance: REGORAFENIB
     Indication: ADENOCARCINOMA OF COLON
     Dosage: DAILY DOSE 160 MG EVERY 28 DAYS
     Route: 048
     Dates: start: 201605, end: 201705
  2. STIVARGA [Suspect]
     Active Substance: REGORAFENIB
     Indication: METASTASES TO LUNG

REACTIONS (7)
  - Asthenia [None]
  - Adenocarcinoma of colon [Fatal]
  - Drug resistance [None]
  - Type 2 diabetes mellitus [None]
  - Palmar-plantar erythrodysaesthesia syndrome [None]
  - Stomatitis [None]
  - Metastases to central nervous system [Fatal]

NARRATIVE: CASE EVENT DATE: 2017
